FAERS Safety Report 12518414 (Version 1)
Quarter: 2016Q2

REPORT INFORMATION
  Report Type: Spontaneous
  Country: BR (occurrence: BR)
  Receive Date: 20160630
  Receipt Date: 20160630
  Transmission Date: 20160815
  Serious: Yes (Hospitalization)
  Sender: FDA-Public Use
  Company Number: BR-PFIZER INC-2016313656

PATIENT
  Age: 83 Year
  Sex: Female
  Weight: 47 kg

DRUGS (1)
  1. XALATAN [Suspect]
     Active Substance: LATANOPROST
     Dosage: 1 DROP IN EACH EYE [3 MCG OF LATANOPROST], 1X/DAY
     Route: 047

REACTIONS (1)
  - Blood sodium decreased [Unknown]
